FAERS Safety Report 8960069 (Version 1)
Quarter: 2012Q4

REPORT INFORMATION
  Report Type: 
  Country: US (occurrence: US)
  Receive Date: 20121211
  Receipt Date: 20121211
  Transmission Date: 20130627
  Serious: Yes (Other)
  Sender: FDA-Public Use
  Company Number: US-AMGEN-USASP2012077924

PATIENT
  Age: 27 Year
  Sex: Female

DRUGS (4)
  1. ENBREL [Suspect]
     Indication: STILL^S DISEASE ADULT ONSET
     Dosage: 25 mg, 2 times/wk
     Route: 058
  2. ANAKINRA [Concomitant]
     Dosage: UNK
  3. METHOTREXATE [Concomitant]
     Dosage: UNK
  4. AZATHIOPRINE [Concomitant]
     Dosage: UNK

REACTIONS (4)
  - Dysphagia [Recovered/Resolved]
  - Swelling face [Recovered/Resolved]
  - Rash pruritic [Recovered/Resolved]
  - Periorbital oedema [Recovered/Resolved]
